FAERS Safety Report 6432772-9 (Version None)
Quarter: 2009Q4

REPORT INFORMATION
  Report Type: 
  Country: None (occurrence: None)
  Receive Date: 20091109
  Receipt Date: 20091103
  Transmission Date: 20100525
  Serious: Yes (Death)
  Sender: FDA-Public Use
  Company Number: A0790245A

PATIENT
  Age: 55 Year
  Sex: Male

DRUGS (3)
  1. AVANDAMET [Suspect]
     Route: 065
  2. AVANDIA [Suspect]
     Dosage: 8MG PER DAY
     Route: 065
     Dates: end: 20070724
  3. ROSIGLITAZONE [Suspect]
     Indication: DIABETES MELLITUS
     Route: 048
     Dates: start: 20040101, end: 20070701

REACTIONS (2)
  - MYOCARDIAL INFARCTION [None]
  - MYOCARDIAL ISCHAEMIA [None]
